FAERS Safety Report 7356418-0 (Version None)
Quarter: 2011Q1

REPORT INFORMATION
  Report Type: 
  Country: None (occurrence: None)
  Receive Date: 20110316
  Receipt Date: 20110311
  Transmission Date: 20110831
  Serious: Yes (Other)
  Sender: FDA-Public Use
  Company Number: GB-PFIZER INC-2011055503

PATIENT
  Age: 73 Year
  Sex: Female

DRUGS (5)
  1. SOLIFENACIN [Suspect]
     Dosage: UNK
  2. GABAPENTIN [Suspect]
     Dosage: 600 MG, 3X/DAY
  3. AMITRIPTYLINE [Suspect]
     Dosage: UNK
  4. OXYCONTIN [Suspect]
     Dosage: UNK
  5. RANITIDINE [Suspect]
     Dosage: UNK

REACTIONS (1)
  - TRANSIENT ISCHAEMIC ATTACK [None]
